FAERS Safety Report 25447353 (Version 1)
Quarter: 2025Q2

REPORT INFORMATION
  Report Type: Spontaneous
  Country: US (occurrence: US)
  Receive Date: 20250617
  Receipt Date: 20250617
  Transmission Date: 20250716
  Serious: No
  Sender: SANOFI AVENTIS
  Company Number: US-SANOFI-02556818

PATIENT
  Age: 65 Year
  Sex: Female

DRUGS (3)
  1. LANTUS SOLOSTAR [Suspect]
     Active Substance: INSULIN GLARGINE
     Indication: Type 2 diabetes mellitus
  2. LANTUS SOLOSTAR [Suspect]
     Active Substance: INSULIN GLARGINE
     Dosage: 44 IU, QD
     Dates: start: 20250512
  3. MOUNJARO [Suspect]
     Active Substance: TIRZEPATIDE
     Dates: start: 20250401

REACTIONS (6)
  - Hot flush [Unknown]
  - Weight decreased [Unknown]
  - Influenza [Unknown]
  - Tremor [Unknown]
  - Blood glucose decreased [Unknown]
  - Product storage error [Unknown]

NARRATIVE: CASE EVENT DATE: 20250101
